FAERS Safety Report 4851824-8 (Version None)
Quarter: 2005Q4

REPORT INFORMATION
  Report Type: 
  Country: None (occurrence: None)
  Receive Date: 20051209
  Receipt Date: 20051129
  Transmission Date: 20060501
  Serious: Yes (Other)
  Sender: FDA-Public Use
  Company Number: 2005163112

PATIENT
  Sex: Male

DRUGS (2)
  1. LIPITOR [Suspect]
     Indication: BLOOD CHOLESTEROL INCREASED
     Dosage: 10 MG (10 MG, 1 IN 1 D)
     Dates: start: 20040101
  2. TENORMIN [Concomitant]

REACTIONS (5)
  - CORONARY ARTERY OCCLUSION [None]
  - DYSPNOEA [None]
  - FATIGUE [None]
  - HEARING IMPAIRED [None]
  - MYALGIA [None]
